FAERS Safety Report 24071450 (Version 1)
Quarter: 2024Q3

REPORT INFORMATION
  Report Type: Report from Study
  Country: DE (occurrence: DE)
  Receive Date: 20240710
  Receipt Date: 20240710
  Transmission Date: 20241017
  Serious: No
  Sender: ROCHE
  Company Number: DE-ROCHE-3275281

PATIENT
  Age: 23 Year
  Sex: Female
  Weight: 85.0 kg

DRUGS (1)
  1. RISDIPLAM [Suspect]
     Active Substance: RISDIPLAM
     Indication: Spinal muscular atrophy
     Dosage: LAST DOSE 18/JAN/2023, 19/MAY/2023, 28/SEP/2023, 01/FEB/2024
     Route: 048
     Dates: start: 20210414

REACTIONS (8)
  - Headache [Recovered/Resolved]
  - Migraine with aura [Recovered/Resolved]
  - Sleep disorder [Not Recovered/Not Resolved]
  - SARS-CoV-2 test positive [Recovered/Resolved]
  - Arthralgia [Not Recovered/Not Resolved]
  - Rash [Recovered/Resolved]
  - Vertigo positional [Recovered/Resolved]
  - Bronchitis [Recovered/Resolved]

NARRATIVE: CASE EVENT DATE: 20220429
